FAERS Safety Report 11778962 (Version 1)
Quarter: 2015Q4

REPORT INFORMATION
  Report Type: Spontaneous
  Country: CA (occurrence: CA)
  Receive Date: 20151125
  Receipt Date: 20151125
  Transmission Date: 20160304
  Serious: Yes (Other)
  Sender: FDA-Public Use
  Company Number: CA-CONCORDIA PHARMACEUTICALS INC.-CO-PL-CA-2015-376

PATIENT
  Age: 69 Year
  Sex: Female

DRUGS (5)
  1. PLAQUENIL [Suspect]
     Active Substance: HYDROXYCHLOROQUINE SULFATE
     Indication: PRODUCT USED FOR UNKNOWN INDICATION
     Route: 065
  2. SULFASALAZINE. [Concomitant]
     Active Substance: SULFASALAZINE
  3. ARAVA [Concomitant]
     Active Substance: LEFLUNOMIDE
  4. TYLENOL [Concomitant]
     Active Substance: ACETAMINOPHEN
  5. METHOTREXATE [Concomitant]
     Active Substance: METHOTREXATE

REACTIONS (4)
  - Productive cough [None]
  - Drug ineffective [Unknown]
  - Temporomandibular joint syndrome [Unknown]
  - Pneumocystis jirovecii pneumonia [Recovering/Resolving]

NARRATIVE: CASE EVENT DATE: 2013
